FAERS Safety Report 9206423 (Version 1)
Quarter: 2013Q2

REPORT INFORMATION
  Report Type: Spontaneous
  Country: US (occurrence: None)
  Receive Date: 20130401
  Receipt Date: 20130401
  Transmission Date: 20140414
  Serious: Yes (Life-Threatening)
  Sender: FDA-Public Use
  Company Number: 20130152

PATIENT
  Age: 43 Year
  Sex: Female

DRUGS (8)
  1. EPINEPHRINE INJECTION, USP (1071-25) 1 MG/ML [Suspect]
     Indication: ANAPHYLACTIC REACTION
     Dosage: 0.3 MG INJECTION NOS
  2. ADRENALINE [Suspect]
     Indication: ANAPHYLACTIC REACTION
     Dosage: 0.3 MG X 3 DOSES
  3. ALBUTEROL [Concomitant]
  4. METHYLENE BLUE INJECTION [Concomitant]
  5. DIPHENHYDRAMINE [Concomitant]
  6. SALINE [Concomitant]
  7. METHYLPREDNISOLONE [Concomitant]
  8. FAMOTIDINE [Concomitant]

REACTIONS (1)
  - No therapeutic response [None]
